FAERS Safety Report 5638138-3 (Version None)
Quarter: 2008Q1

REPORT INFORMATION
  Report Type: 
  Country: None (occurrence: None)
  Receive Date: 20080221
  Receipt Date: 20080214
  Transmission Date: 20080703
  Serious: Yes (Death)
  Sender: FDA-Public Use
  Company Number: MSER20080004

PATIENT
  Age: 46 Year
  Sex: Female

DRUGS (6)
  1. MORPHINE SULFATE [Suspect]
     Dates: start: 20060101, end: 20060101
  2. ALPRAZOLAM [Suspect]
     Dates: start: 20060101, end: 20060101
  3. DIPHENHYDRAMINE HCL [Suspect]
     Dates: end: 20060101
  4. BUPIVACAINE [Suspect]
     Dates: end: 20060101
  5. PROMETHAZINE [Suspect]
     Dates: end: 20060101
  6. SERTRALINE [Suspect]
     Dates: end: 20060101

REACTIONS (9)
  - BLOOD CREATININE INCREASED [None]
  - BLOOD POTASSIUM INCREASED [None]
  - BLOOD PRESSURE DECREASED [None]
  - BLOOD UREA INCREASED [None]
  - CARDIO-RESPIRATORY ARREST [None]
  - CARDIOPULMONARY FAILURE [None]
  - OEDEMA [None]
  - PLEURAL EFFUSION [None]
  - PULMONARY CONGESTION [None]
